FAERS Safety Report 25961708 (Version 3)
Quarter: 2025Q4

REPORT INFORMATION
  Report Type: Report from Study
  Country: US (occurrence: US)
  Receive Date: 20251027
  Receipt Date: 20251224
  Transmission Date: 20260118
  Serious: Yes (Other)
  Sender: BOEHRINGER INGELHEIM
  Company Number: US-BoehringerIngelheim-2024-BI-035880

PATIENT
  Age: 67 Year
  Sex: Female

DRUGS (4)
  1. OFEV [Suspect]
     Active Substance: NINTEDANIB
     Indication: Interstitial lung disease
     Dates: start: 20240612, end: 20250624
  2. OFEV [Suspect]
     Active Substance: NINTEDANIB
  3. OXYGEN [Concomitant]
     Active Substance: OXYGEN
     Indication: Product used for unknown indication
     Dosage: 3L/MIN AT NIGHT AND 3L/MIN WITH EXERTION
  4. ADVAIR DISC INHALER [Concomitant]
     Indication: Product used for unknown indication

REACTIONS (19)
  - Interstitial lung disease [Unknown]
  - Dizziness [Recovered/Resolved]
  - Abdominal pain upper [Recovered/Resolved]
  - Nausea [Recovered/Resolved]
  - Diarrhoea [Recovering/Resolving]
  - Diarrhoea [Recovered/Resolved]
  - Faeces soft [Recovered/Resolved]
  - Bronchitis [Recovered/Resolved]
  - Malaise [Unknown]
  - Diarrhoea [Not Recovered/Not Resolved]
  - Diarrhoea [Recovered/Resolved]
  - Gastroenteritis viral [Recovered/Resolved]
  - Pulmonary function test abnormal [Unknown]
  - Nausea [Unknown]
  - Weight decreased [Unknown]
  - Lung disorder [Unknown]
  - Headache [Recovered/Resolved]
  - Protein total decreased [Unknown]
  - Gastrointestinal pain [Recovered/Resolved]

NARRATIVE: CASE EVENT DATE: 20240601
